FAERS Safety Report 12738112 (Version 3)
Quarter: 2018Q4

REPORT INFORMATION
  Report Type: Spontaneous
  Country: US (occurrence: US)
  Receive Date: 20160912
  Receipt Date: 20181102
  Transmission Date: 20190204
  Serious: No
  Sender: FDA-Public Use
  Company Number: US-SA-2016SA157386

PATIENT
  Age: 67 Year
  Sex: Female

DRUGS (5)
  1. TOUJEO [Suspect]
     Active Substance: INSULIN GLARGINE
     Indication: TYPE 2 DIABETES MELLITUS
     Dosage: 70 DF,QD
     Route: 065
     Dates: start: 20160409
  2. TOUJEO [Suspect]
     Active Substance: INSULIN GLARGINE
     Dosage: 23 DF,QD
     Route: 065
     Dates: start: 2016, end: 2016
  3. TOUJEO [Suspect]
     Active Substance: INSULIN GLARGINE
     Dosage: 70 DF,QD
     Route: 065
     Dates: start: 20160409
  4. TOUJEO [Suspect]
     Active Substance: INSULIN GLARGINE
     Dosage: 62 DF,QD
     Route: 065
     Dates: start: 2016, end: 2016
  5. TOUJEO [Suspect]
     Active Substance: INSULIN GLARGINE
     Dosage: 68 DF,QD
     Route: 065
     Dates: start: 2016

REACTIONS (4)
  - Dermatitis [Unknown]
  - Injection site bruising [Unknown]
  - Injection site pain [Unknown]
  - Blood glucose decreased [Unknown]

NARRATIVE: CASE EVENT DATE: 2016
